FAERS Safety Report 17742027 (Version 1)
Quarter: 2020Q2

REPORT INFORMATION
  Report Type: Spontaneous
  Country: US (occurrence: US)
  Receive Date: 20200504
  Receipt Date: 20200504
  Transmission Date: 20200714
  Serious: Yes (Hospitalization, Disabling, Other)
  Sender: FDA-Public Use
  Company Number: US-NAPPMUNDI-USA-2020-0152366

PATIENT

DRUGS (1)
  1. OXYCONTIN [Suspect]
     Active Substance: OXYCODONE HYDROCHLORIDE
     Indication: SURGERY
     Dosage: 80 MG, TID
     Route: 048

REACTIONS (5)
  - Product prescribing issue [Unknown]
  - Disability [Unknown]
  - Impaired work ability [Unknown]
  - Injury [Unknown]
  - Drug dependence [Unknown]

NARRATIVE: CASE EVENT DATE: 2007
